FAERS Safety Report 16713330 (Version 2)
Quarter: 2019Q3

REPORT INFORMATION
  Report Type: Report from Study
  Country: None (occurrence: US)
  Receive Date: 20190818
  Receipt Date: 20190923
  Transmission Date: 20191004
  Serious: Yes (Other)
  Sender: FDA-Public Use
  Company Number: US-ABBVIE-19K-163-2886639-00

PATIENT
  Sex: Female

DRUGS (2)
  1. ORILISSA [Suspect]
     Active Substance: ELAGOLIX SODIUM
     Indication: PRODUCT USED FOR UNKNOWN INDICATION
     Route: 048
     Dates: start: 20190101, end: 201907
  2. ORILISSA [Suspect]
     Active Substance: ELAGOLIX SODIUM
     Route: 048
     Dates: start: 201907, end: 2019

REACTIONS (4)
  - Ovarian mass [Not Recovered/Not Resolved]
  - Menorrhagia [Recovered/Resolved]
  - Hot flush [Not Recovered/Not Resolved]
  - Oligomenorrhoea [Recovered/Resolved]

NARRATIVE: CASE EVENT DATE: 2019
